FAERS Safety Report 9519955 (Version 2)
Quarter: 2013Q4

REPORT INFORMATION
  Report Type: Spontaneous
  Country: US (occurrence: US)
  Receive Date: 20130912
  Receipt Date: 20131010
  Transmission Date: 20140711
  Serious: Yes (Death, Hospitalization)
  Sender: FDA-Public Use
  Company Number: US-009507513-1309USA003428

PATIENT
  Age: 81 Year
  Sex: Female
  Weight: 75.74 kg

DRUGS (10)
  1. ENALAPRIL MALEATE [Suspect]
     Indication: RENAL CELL CARCINOMA
     Dosage: 37.5
     Route: 048
     Dates: start: 20130625, end: 201309
  2. ZETIA [Suspect]
     Indication: RENAL CELL CARCINOMA
     Dosage: 37.5
     Route: 048
     Dates: start: 20130625, end: 201309
  3. METOPROLOL [Suspect]
  4. PLAVIX [Suspect]
  5. DIGOXIN [Suspect]
  6. ASPIRIN [Suspect]
  7. ATENOLOL [Suspect]
  8. TEKTURNA [Suspect]
  9. ALEVE [Suspect]
  10. SUTENT [Suspect]
     Dosage: 4 WEEKS ON AND 2 WEEKS OFF

REACTIONS (9)
  - Death [Fatal]
  - Urinary tract infection [Recovering/Resolving]
  - Dehydration [Recovering/Resolving]
  - Blood pressure decreased [Unknown]
  - Asthenia [Unknown]
  - Somnolence [Unknown]
  - Cardiac disorder [Unknown]
  - Adverse event [Unknown]
  - Pulmonary mass [Unknown]
